FAERS Safety Report 26025593 (Version 2)
Quarter: 2025Q4

REPORT INFORMATION
  Report Type: Spontaneous
  Country: US (occurrence: US)
  Receive Date: 20251111
  Receipt Date: 20251219
  Transmission Date: 20260117
  Serious: Yes (Death, Other)
  Sender: RANBAXY
  Company Number: US-SUN PHARMACEUTICAL INDUSTRIES LTD-2025R1-535103

PATIENT
  Sex: Male

DRUGS (4)
  1. ILUMYA [Suspect]
     Active Substance: TILDRAKIZUMAB-ASMN
     Indication: Psoriasis
     Dosage: 100 MG/ML, WEEK 0
     Route: 058
     Dates: start: 20241127
  2. ILUMYA [Suspect]
     Active Substance: TILDRAKIZUMAB-ASMN
     Dosage: 100 MG/ML, WEEK 4
     Route: 058
     Dates: start: 20241223
  3. ILUMYA [Suspect]
     Active Substance: TILDRAKIZUMAB-ASMN
     Dosage: 100 MG/ML, WEEK 12
     Route: 058
     Dates: start: 20250704
  4. ILUMYA [Suspect]
     Active Substance: TILDRAKIZUMAB-ASMN
     Dosage: 100 MG/ML, WEEK 12
     Route: 058
     Dates: start: 20251007, end: 20251024

REACTIONS (5)
  - Death [Fatal]
  - Immune thrombocytopenia [Unknown]
  - Therapy cessation [Unknown]
  - Contusion [Recovered/Resolved]
  - Platelet count decreased [Unknown]

NARRATIVE: CASE EVENT DATE: 20250916
